FAERS Safety Report 13756164 (Version 7)
Quarter: 2018Q3

REPORT INFORMATION
  Report Type: Spontaneous
  Country: US (occurrence: US)
  Receive Date: 20170714
  Receipt Date: 20180907
  Transmission Date: 20181010
  Serious: Yes (Other)
  Sender: FDA-Public Use
  Company Number: US-CELGENEUS-USA-20170701820

PATIENT
  Sex: Male

DRUGS (2)
  1. OTEZLA [Suspect]
     Active Substance: APREMILAST
     Indication: PSORIATIC ARTHROPATHY
     Dosage: 60 MILLIGRAM
     Route: 048
     Dates: start: 20151111, end: 20170519
  2. OTEZLA [Suspect]
     Active Substance: APREMILAST
     Dosage: 60 MILLIGRAM
     Route: 048
     Dates: start: 20170705, end: 201808

REACTIONS (7)
  - Depression [Unknown]
  - Psoriasis [Not Recovered/Not Resolved]
  - Cardiac disorder [Unknown]
  - Pain of skin [Unknown]
  - Feeling abnormal [Not Recovered/Not Resolved]
  - Xerosis [Unknown]
  - Pruritus [Unknown]

NARRATIVE: CASE EVENT DATE: 2017
